FAERS Safety Report 6372562-9 (Version None)
Quarter: 2009Q3

REPORT INFORMATION
  Report Type: 
  Country: None (occurrence: None)
  Receive Date: 20090924
  Receipt Date: 20080909
  Transmission Date: 20100115
  Serious: No
  Sender: FDA-Public Use
  Company Number: US-ASTRAZENECA-2008UW18757

PATIENT
  Age: 20 Year
  Sex: Female

DRUGS (1)
  1. SEROQUEL [Suspect]
     Route: 048

REACTIONS (4)
  - IMMUNE SYSTEM DISORDER [None]
  - RASH [None]
  - VISION BLURRED [None]
  - WITHDRAWAL SYNDROME [None]
